FAERS Safety Report 8242149-1 (Version None)
Quarter: 2012Q1

REPORT INFORMATION
  Report Type: 
  Country: None (occurrence: None)
  Receive Date: 20120314
  Receipt Date: 20110705
  Transmission Date: 20120608
  Serious: No
  Sender: FDA-Public Use
  Company Number: PHHY2011US61100

PATIENT
  Age: 53 Year
  Sex: Female

DRUGS (1)
  1. FANAPT [Suspect]
     Indication: SCHIZOPHRENIA
     Dosage: 05 MG, BID, ORAL; 05 MG,QD, ORAL
     Route: 048
     Dates: start: 20110620, end: 20110705

REACTIONS (2)
  - DIZZINESS [None]
  - BLOOD PRESSURE DECREASED [None]
